FAERS Safety Report 9710098 (Version 1)
Quarter: 2013Q4

REPORT INFORMATION
  Report Type: Report from Study
  Country: GR (occurrence: GR)
  Receive Date: 20131126
  Receipt Date: 20131126
  Transmission Date: 20140711
  Serious: Yes (Other)
  Sender: FDA-Public Use
  Company Number: GR-ROCHE-1308633

PATIENT
  Sex: Female
  Weight: 65 kg

DRUGS (2)
  1. ROACTEMRA [Suspect]
     Indication: RHEUMATOID ARTHRITIS
     Route: 042
     Dates: start: 2011
  2. T4 [Concomitant]
     Indication: HYPOTHYROIDISM
     Route: 065
     Dates: start: 2010

REACTIONS (4)
  - Vertigo positional [Unknown]
  - Depression [Unknown]
  - Osteoporosis [Unknown]
  - Blood triglycerides abnormal [Unknown]
